FAERS Safety Report 11833098 (Version 4)
Quarter: 2016Q1

REPORT INFORMATION
  Report Type: Spontaneous
  Country: JP (occurrence: JP)
  Receive Date: 20151214
  Receipt Date: 20160224
  Transmission Date: 20160525
  Serious: Yes (Life-Threatening)
  Sender: FDA-Public Use
  Company Number: JP-JNJFOC-20151210163

PATIENT
  Age: 62 Year
  Sex: Male
  Weight: 117.8 kg

DRUGS (4)
  1. XARELTO [Suspect]
     Active Substance: RIVAROXABAN
     Indication: EMBOLISM VENOUS
     Route: 048
     Dates: start: 20151124, end: 20151127
  2. APLEWAY [Suspect]
     Active Substance: TOFOGLIFLOZIN
     Indication: DIABETES MELLITUS
     Route: 048
     Dates: start: 20151113, end: 20151127
  3. XARELTO [Suspect]
     Active Substance: RIVAROXABAN
     Indication: PULMONARY EMBOLISM
     Route: 048
     Dates: start: 20151124, end: 20151127
  4. FUROSEMIDE. [Suspect]
     Active Substance: FUROSEMIDE
     Indication: CARDIAC FAILURE CHRONIC
     Route: 048
     Dates: start: 20151113, end: 20151127

REACTIONS (4)
  - Pulmonary embolism [Recovered/Resolved]
  - Shock symptom [Recovered/Resolved]
  - Renal impairment [Recovered/Resolved]
  - Vital functions abnormal [Recovered/Resolved]

NARRATIVE: CASE EVENT DATE: 20151124
